FAERS Safety Report 7302828-7 (Version None)
Quarter: 2011Q1

REPORT INFORMATION
  Report Type: 
  Country: None (occurrence: None)
  Receive Date: 20110218
  Receipt Date: 20110210
  Transmission Date: 20110831
  Serious: Yes (Other)
  Sender: FDA-Public Use
  Company Number: IR-WATSON-2011-01807

PATIENT
  Age: 16 Year
  Sex: Male

DRUGS (1)
  1. METHYLPREDNISOLONE ACETATE [Suspect]
     Indication: NEPHROTIC SYNDROME
     Dosage: 1000 MG, DAILY
     Route: 042

REACTIONS (1)
  - ATRIAL FIBRILLATION [None]
